FAERS Safety Report 8579847-6 (Version None)
Quarter: 2012Q3

REPORT INFORMATION
  Report Type: 
  Country: None (occurrence: None)
  Receive Date: 20120808
  Receipt Date: 20120802
  Transmission Date: 20120928
  Serious: Yes (Death, Hospitalization)
  Sender: FDA-Public Use
  Company Number: JP-ELI_LILLY_AND_COMPANY-JP201202005453

PATIENT
  Age: 71 Year
  Sex: Male

DRUGS (7)
  1. GEMZAR [Suspect]
     Dosage: 1520 MG, QD
     Dates: start: 20111228, end: 20111228
  2. GEMCITABINE HYDROCHLORIDE [Concomitant]
     Indication: TRANSITIONAL CELL CARCINOMA
     Dosage: 3770 MG, QD
     Route: 042
     Dates: start: 20120131, end: 20120131
  3. CARBOPLATIN [Concomitant]
     Indication: TRANSITIONAL CELL CARCINOMA
     Dosage: 270 MG, QD
     Route: 042
     Dates: start: 20111201, end: 20111201
  4. CARBOPLATIN [Concomitant]
     Dosage: 266 MG, QD
     Route: 042
     Dates: start: 20111228, end: 20111228
  5. GEMZAR [Suspect]
     Indication: TRANSITIONAL CELL CARCINOMA
     Dosage: 1500 MG, WEEKLY (1/W)
     Route: 042
     Dates: start: 20111201, end: 20111208
  6. GEMZAR [Suspect]
     Dosage: 1520 MG, QD
     Dates: start: 20120104, end: 20120104
  7. TAXOL [Concomitant]
     Indication: TRANSITIONAL CELL CARCINOMA
     Dosage: 226 MG, QD
     Route: 042
     Dates: start: 20120131, end: 20120131

REACTIONS (3)
  - HEPATIC FAILURE [None]
  - ABDOMINAL PAIN [None]
  - HAEMOLYTIC URAEMIC SYNDROME [None]
